FAERS Safety Report 11753873 (Version 1)
Quarter: 2015Q4

REPORT INFORMATION
  Report Type: Spontaneous
  Country: US (occurrence: US)
  Receive Date: 20151119
  Receipt Date: 20151119
  Transmission Date: 20160304
  Serious: Yes (Other)
  Sender: FDA-Public Use
  Company Number: US-BAYER-2015-462442

PATIENT
  Age: 17 Year
  Sex: Female
  Weight: 49.89 kg

DRUGS (5)
  1. DEPO-PROVERA [Concomitant]
     Active Substance: MEDROXYPROGESTERONE ACETATE
  2. LAMICTAL [Concomitant]
     Active Substance: LAMOTRIGINE
  3. MIDOL COMPLETE [Suspect]
     Active Substance: ACETAMINOPHEN\CAFFEINE\PYRILAMINE MALEATE
     Dosage: 8 DF, UNK
     Dates: start: 20151104
  4. KEPPRA [Concomitant]
     Active Substance: LEVETIRACETAM
  5. PROZAC [Concomitant]
     Active Substance: FLUOXETINE HYDROCHLORIDE

REACTIONS (3)
  - Vomiting [Not Recovered/Not Resolved]
  - Suicide attempt [None]
  - Extra dose administered [Unknown]

NARRATIVE: CASE EVENT DATE: 20151104
